FAERS Safety Report 10607646 (Version 2)
Quarter: 2014Q4

REPORT INFORMATION
  Report Type: Spontaneous
  Country: NO (occurrence: NO)
  Receive Date: 20141125
  Receipt Date: 20141125
  Transmission Date: 20150529
  Serious: Yes (Other)
  Sender: FDA-Public Use
  Company Number: NO-WATSON-2009-12450

PATIENT
  Age: 40 Day
  Sex: Female
  Weight: 5 kg

DRUGS (1)
  1. TOPIRAMATE (UNKNOWN) [Suspect]
     Active Substance: TOPIRAMATE
     Indication: EPILEPSY
     Dosage: 100 MG, DAILY
     Route: 063

REACTIONS (2)
  - Exposure during breast feeding [Recovered/Resolved]
  - Diarrhoea [Recovered/Resolved]
